FAERS Safety Report 9735209 (Version 4)
Quarter: 2014Q1

REPORT INFORMATION
  Report Type: Report from Study
  Country: US (occurrence: US)
  Receive Date: 20131206
  Receipt Date: 20140213
  Transmission Date: 20141002
  Serious: Yes (Hospitalization, Other)
  Sender: FDA-Public Use
  Company Number: US-SA-2013SA117684

PATIENT
  Age: 40 Year
  Sex: Female

DRUGS (2)
  1. AUBAGIO [Suspect]
     Indication: MULTIPLE SCLEROSIS
     Dosage: THERAPY START DATE- 2 OR 3 MMONTHS AGO
     Route: 048
     Dates: start: 20130907
  2. AUBAGIO [Suspect]
     Indication: MULTIPLE SCLEROSIS
     Route: 048
     Dates: end: 20140110

REACTIONS (7)
  - Anastomotic ulcer [Unknown]
  - Multiple sclerosis relapse [Unknown]
  - Vertigo [Unknown]
  - Balance disorder [Unknown]
  - Pain [Unknown]
  - Surgery [Unknown]
  - Influenza [Recovering/Resolving]
